FAERS Safety Report 13622637 (Version 2)
Quarter: 2017Q3

REPORT INFORMATION
  Report Type: Report from Study
  Country: None (occurrence: NL)
  Receive Date: 20170607
  Receipt Date: 20170710
  Transmission Date: 20171127
  Serious: No
  Sender: FDA-Public Use
  Company Number: NL-ABBVIE-17K-114-1997325-00

PATIENT
  Sex: Female
  Weight: 97 kg

DRUGS (1)
  1. DUODOPA [Suspect]
     Active Substance: CARBIDOPA\LEVODOPA
     Indication: PARKINSON^S DISEASE
     Dosage: MD 3, CD 4.1, ED 2, ND 3.8
     Route: 050
     Dates: start: 20130514

REACTIONS (21)
  - Respiratory rate increased [Not Recovered/Not Resolved]
  - Wrist fracture [Unknown]
  - Screaming [Not Recovered/Not Resolved]
  - Nightmare [Not Recovered/Not Resolved]
  - On and off phenomenon [Not Recovered/Not Resolved]
  - Bursitis [Unknown]
  - Gait disturbance [Not Recovered/Not Resolved]
  - Constipation [Not Recovered/Not Resolved]
  - Fibroma [Not Recovered/Not Resolved]
  - Depressed mood [Not Recovered/Not Resolved]
  - Hallucination, visual [Not Recovered/Not Resolved]
  - Bradykinesia [Not Recovered/Not Resolved]
  - Ankle fracture [Unknown]
  - Restlessness [Not Recovered/Not Resolved]
  - Hip fracture [Unknown]
  - Tremor [Not Recovered/Not Resolved]
  - Asthenia [Not Recovered/Not Resolved]
  - Stoma site erythema [Not Recovered/Not Resolved]
  - Emotional disorder [Unknown]
  - Musculoskeletal stiffness [Not Recovered/Not Resolved]
  - Stoma site discharge [Unknown]

NARRATIVE: CASE EVENT DATE: 2014
